FAERS Safety Report 16073050 (Version 3)
Quarter: 2021Q4

REPORT INFORMATION
  Report Type: Report from Study
  Country: DE (occurrence: DE)
  Receive Date: 20190314
  Receipt Date: 20211203
  Transmission Date: 20220303
  Serious: Yes (Hospitalization)
  Sender: FDA-Public Use
  Company Number: DE-SA-2019SA068126

PATIENT
  Age: 56 Year
  Sex: Male
  Weight: 93 kg

DRUGS (7)
  1. AFLIBERCEPT [Suspect]
     Active Substance: AFLIBERCEPT
     Indication: Rectal cancer
     Dosage: 372 MG, QCY
     Route: 042
     Dates: start: 20190306, end: 20190306
  2. AFLIBERCEPT [Suspect]
     Active Substance: AFLIBERCEPT
     Indication: Rectal cancer
     Dosage: 372 MG, QCY
     Route: 042
     Dates: start: 20190306, end: 20190306
  3. INVESTIGATIONAL PRODUCT [Suspect]
     Active Substance: INVESTIGATIONAL PRODUCT
     Indication: Rectal cancer
     Dosage: 372 MG, QCY
     Route: 042
     Dates: start: 20190306, end: 20190306
  4. PLACEBO [Suspect]
     Active Substance: UNSPECIFIED INGREDIENT
     Indication: Rectal cancer
     Dosage: 372 MG, QCY
     Route: 042
     Dates: start: 20190306, end: 20190306
  5. FLUOROURACIL [Suspect]
     Active Substance: FLUOROURACIL
     Indication: Rectal cancer
     Dosage: 6080 MG, QCY
     Route: 042
     Dates: start: 20190306, end: 20190306
  6. OXALIPLATIN [Suspect]
     Active Substance: OXALIPLATIN
     Indication: Rectal cancer
     Dosage: 180 MG, QCY
     Route: 042
     Dates: start: 20190306, end: 20190306
  7. LEUCOVORIN [Suspect]
     Active Substance: LEUCOVORIN
     Indication: Rectal cancer
     Dosage: 760 MG, QCY
     Route: 042
     Dates: start: 20190306, end: 20190306

REACTIONS (1)
  - Chills [Recovered/Resolved]

NARRATIVE: CASE EVENT DATE: 20190308
